FAERS Safety Report 5916558-7 (Version None)
Quarter: 2008Q4

REPORT INFORMATION
  Report Type: 
  Country: None (occurrence: None)
  Receive Date: 20081013
  Receipt Date: 20081010
  Transmission Date: 20090506
  Serious: Yes (Hospitalization)
  Sender: FDA-Public Use
  Company Number: D0058691A

PATIENT
  Age: 47 Year
  Sex: Female

DRUGS (4)
  1. ELONTRIL [Suspect]
     Indication: DEPRESSION
     Dosage: 150MG PER DAY
     Route: 048
     Dates: start: 20080825, end: 20080907
  2. TREVILOR [Concomitant]
     Indication: DEPRESSION
     Route: 065
     Dates: start: 20080701, end: 20080912
  3. MIRTAZAPINE [Concomitant]
     Indication: SLEEP DISORDER
     Route: 065
     Dates: start: 20080801
  4. LERCANIDIPINE [Concomitant]
     Indication: HYPERTENSION
     Route: 065
     Dates: start: 20080701

REACTIONS (3)
  - ANXIETY DISORDER [None]
  - HYPERTENSIVE CRISIS [None]
  - PSORIASIS [None]
